FAERS Safety Report 13108609 (Version 2)
Quarter: 2017Q1

REPORT INFORMATION
  Report Type: Report from Study
  Country: US (occurrence: US)
  Receive Date: 20170112
  Receipt Date: 20170120
  Transmission Date: 20170428
  Serious: No
  Sender: FDA-Public Use
  Company Number: US-ASTRAZENECA-2017SE02736

PATIENT
  Age: 4 Month
  Sex: Male

DRUGS (5)
  1. SYNAGIS [Suspect]
     Active Substance: PALIVIZUMAB
     Indication: PREMATURE BABY
     Route: 030
     Dates: start: 201612
  2. TYLENOL [Concomitant]
     Active Substance: ACETAMINOPHEN
  3. PRESERVISION [Concomitant]
     Active Substance: MINERALS\VITAMINS
  4. VITAMIN D3 [Concomitant]
     Active Substance: CHOLECALCIFEROL
  5. CYCLOGYL [Concomitant]
     Active Substance: CYCLOPENTOLATE HYDROCHLORIDE

REACTIONS (2)
  - Off label use [Unknown]
  - Product use issue [Unknown]

NARRATIVE: CASE EVENT DATE: 201612
